FAERS Safety Report 13697323 (Version 3)
Quarter: 2017Q3

REPORT INFORMATION
  Report Type: Spontaneous
  Country: JP (occurrence: JP)
  Receive Date: 20170628
  Receipt Date: 20170804
  Transmission Date: 20171127
  Serious: Yes (Hospitalization, Other)
  Sender: FDA-Public Use
  Company Number: JP-BAYER-2017-122330

PATIENT
  Age: 78 Year
  Sex: Female
  Weight: 54.5 kg

DRUGS (5)
  1. BAYASPIRIN 100 MG [Suspect]
     Active Substance: ASPIRIN
     Indication: TRANSIENT ISCHAEMIC ATTACK
     Dosage: 100 MG, QD
     Route: 048
     Dates: start: 200310, end: 20120407
  2. CALMDOWN [Concomitant]
     Active Substance: ALPRAZOLAM
     Indication: AUTONOMIC NERVOUS SYSTEM IMBALANCE
     Dosage: DAILY DOSE .8 MG
     Route: 048
     Dates: start: 20031108, end: 201204
  3. BAYASPIRIN 100 MG [Suspect]
     Active Substance: ASPIRIN
     Indication: CEREBRAL INFARCTION
  4. JANUVIA [Concomitant]
     Active Substance: SITAGLIPTIN PHOSPHATE
     Indication: TYPE 2 DIABETES MELLITUS
     Dosage: 50 MG, QD
     Route: 048
     Dates: start: 20110223, end: 201204
  5. CALBLOCK [Concomitant]
     Active Substance: AZELNIDIPINE
     Indication: HYPERTENSION
     Dosage: 16 MG, QD
     Route: 048
     Dates: start: 20100130, end: 201204

REACTIONS (10)
  - Fall [None]
  - Pulmonary embolism [None]
  - Deep vein thrombosis [None]
  - Contusion [Recovered/Resolved]
  - Contusion [None]
  - Joint range of motion decreased [Recovered/Resolved]
  - Cardiac failure [None]
  - Chest discomfort [None]
  - Joint swelling [Recovered/Resolved]
  - Haemorrhage subcutaneous [Recovered/Resolved]

NARRATIVE: CASE EVENT DATE: 20120407
